FAERS Safety Report 19067576 (Version 2)
Quarter: 2021Q2

REPORT INFORMATION
  Report Type: Report from Study
  Country: JP (occurrence: JP)
  Receive Date: 20210329
  Receipt Date: 20210401
  Transmission Date: 20210717
  Serious: Yes (Death, Life-Threatening, Hospitalization, Other)
  Sender: FDA-Public Use
  Company Number: JP-JNJFOC-A-CH2017-153936

PATIENT
  Age: 24 Year
  Sex: Female
  Weight: 37.7 kg

DRUGS (30)
  1. UPTRAVI [Suspect]
     Active Substance: SELEXIPAG
     Indication: PULMONARY ARTERIAL HYPERTENSION
     Dosage: 0.2 MG, BID
     Route: 048
     Dates: start: 20171229, end: 20180111
  2. FLUTRAN [Suspect]
     Active Substance: FLUOCINOLONE ACETONIDE
     Indication: OEDEMA DUE TO CARDIAC DISEASE
  3. BERASUS [Concomitant]
     Active Substance: BERAPROST SODIUM
  4. OXYGEN. [Concomitant]
     Active Substance: OXYGEN
  5. BIO?THREE [Concomitant]
     Active Substance: HERBALS
     Dates: start: 20170622, end: 20180625
  6. SAMSCA [Concomitant]
     Active Substance: TOLVAPTAN
     Indication: MITRAL VALVE INCOMPETENCE
     Dosage: 3.75 MG, QD
     Dates: start: 20170807, end: 20180620
  7. SAMSCA [Concomitant]
     Active Substance: TOLVAPTAN
     Indication: CARDIAC FAILURE
  8. VENTAVIS [Concomitant]
     Active Substance: ILOPROST
     Indication: PULMONARY ARTERIAL HYPERTENSION
     Dates: start: 20170310, end: 20180605
  9. ADCIRCA [Concomitant]
     Active Substance: TADALAFIL
  10. OPSUMIT [Suspect]
     Active Substance: MACITENTAN
     Indication: PULMONARY ARTERIAL HYPERTENSION
     Dosage: 10 MG, QD
     Route: 048
     Dates: start: 20160402, end: 20180622
  11. UPTRAVI [Suspect]
     Active Substance: SELEXIPAG
     Dosage: 0.4 MG, BID
     Route: 048
     Dates: start: 20180215, end: 20180621
  12. FLUTRAN [Suspect]
     Active Substance: FLUOCINOLONE ACETONIDE
     Indication: MITRAL VALVE INCOMPETENCE
     Dosage: 2 MG, QD
     Route: 048
     Dates: start: 20170928, end: 20180621
  13. FERROUS CITRATE NA [Concomitant]
     Active Substance: SODIUM FERROUS CITRATE
     Indication: IRON DEFICIENCY ANAEMIA
     Dates: start: 20151126, end: 20180623
  14. FAMOTIDINE. [Concomitant]
     Active Substance: FAMOTIDINE
     Indication: GASTRITIS
     Dates: start: 20160725, end: 20180611
  15. UPTRAVI [Suspect]
     Active Substance: SELEXIPAG
     Dosage: 0.6 MG, BID
     Route: 048
     Dates: start: 20180209, end: 20180214
  16. FUROSEMIDE. [Concomitant]
     Active Substance: FUROSEMIDE
     Indication: MITRAL VALVE INCOMPETENCE
     Dates: start: 20160917, end: 20180625
  17. ADEMPAS [Suspect]
     Active Substance: RIOCIGUAT
     Indication: PULMONARY ARTERIAL HYPERTENSION
     Dosage: 4 MG, QD
     Route: 048
     Dates: start: 20170824, end: 20180621
  18. SPIRONOLACTON [Concomitant]
     Active Substance: SPIRONOLACTONE
     Indication: MITRAL VALVE INCOMPETENCE
     Dates: start: 20130926, end: 20180621
  19. TANATRIL [Concomitant]
     Active Substance: IMIDAPRIL
     Indication: HYPERTENSION
  20. FERROMIA [Concomitant]
     Active Substance: SODIUM FERROUS CITRATE
  21. OPSUMIT [Suspect]
     Active Substance: MACITENTAN
     Dosage: 5 MG, QD
     Route: 048
  22. FLUTRAN [Suspect]
     Active Substance: FLUOCINOLONE ACETONIDE
     Indication: CARDIAC FAILURE
  23. TANATRIL [Concomitant]
     Active Substance: IMIDAPRIL
     Indication: MITRAL VALVE INCOMPETENCE
     Dates: start: 20140710, end: 20180622
  24. TEPRENONE [Concomitant]
     Active Substance: TEPRENONE
     Indication: GASTRITIS
     Dates: start: 20160905, end: 20180623
  25. TAKECAB [Concomitant]
     Active Substance: VONOPRAZAN FUMARATE
     Indication: GASTRITIS
     Dosage: 20 MG, QD
     Dates: start: 20180622, end: 20180624
  26. GLUCONSAN K [Concomitant]
     Active Substance: POTASSIUM GLUCONATE
     Indication: HYPOKALAEMIA
     Dosage: 9 G, QD
     Dates: start: 20180625, end: 20180625
  27. UPTRAVI [Suspect]
     Active Substance: SELEXIPAG
     Dosage: 0.4 MG, BID
     Route: 048
     Dates: start: 20180112, end: 20180208
  28. FUROSEMIDE. [Concomitant]
     Active Substance: FUROSEMIDE
     Indication: CARDIAC FAILURE
  29. LUPRAC [Concomitant]
     Active Substance: TORSEMIDE
  30. SPIRONOLACTON [Concomitant]
     Active Substance: SPIRONOLACTONE
     Indication: CARDIAC FAILURE

REACTIONS (18)
  - Condition aggravated [Fatal]
  - Ascites [Not Recovered/Not Resolved]
  - Haematemesis [Recovering/Resolving]
  - Pulmonary hypertensive crisis [Fatal]
  - Melaena [Unknown]
  - Transfusion [Unknown]
  - Back pain [Recovered/Resolved]
  - White blood cell count decreased [Not Recovered/Not Resolved]
  - Diarrhoea [Not Recovered/Not Resolved]
  - Pain in jaw [Recovered/Resolved]
  - Hypotension [Recovered/Resolved]
  - Renal failure [Not Recovered/Not Resolved]
  - Haemoglobin decreased [Unknown]
  - Oedema [Not Recovered/Not Resolved]
  - Red blood cell count decreased [Unknown]
  - Endoscopy [Unknown]
  - Anuria [Not Recovered/Not Resolved]
  - Pulmonary arterial hypertension [Fatal]

NARRATIVE: CASE EVENT DATE: 20160902
